FAERS Safety Report 15607519 (Version 1)
Quarter: 2018Q4

REPORT INFORMATION
  Report Type: Spontaneous
  Country: TR (occurrence: TR)
  Receive Date: 20181112
  Receipt Date: 20181112
  Transmission Date: 20190205
  Serious: Yes (Other)
  Sender: FDA-Public Use
  Company Number: TR-IMPAX LABORATORIES, LLC-2018-IPXL-03717

PATIENT
  Age: 55 Year
  Sex: Male

DRUGS (4)
  1. SELEGILINE [Suspect]
     Active Substance: SELEGILINE
     Indication: PARKINSON^S DISEASE
     Dosage: 50 MILLIGRAM, TWO TIMES A DAY
     Route: 065
  2. PRAMIPEXOLE. [Suspect]
     Active Substance: PRAMIPEXOLE
     Dosage: DOSE REDUCED, UNK
     Route: 065
  3. PRAMIPEXOLE. [Suspect]
     Active Substance: PRAMIPEXOLE
     Indication: PARKINSON^S DISEASE
     Dosage: 1 MILLIGRAM, THREE TIMES A DAY
     Route: 065
  4. PROPRANOLOL HYDROCHLORIDE IR [Suspect]
     Active Substance: PROPRANOLOL HYDROCHLORIDE
     Indication: ARRHYTHMIA
     Dosage: 120 MILLIGRAM, DAILY
     Route: 065

REACTIONS (1)
  - Charles Bonnet syndrome [Recovering/Resolving]
